FAERS Safety Report 17484531 (Version 1)
Quarter: 2020Q1

REPORT INFORMATION
  Report Type: Report from Study
  Country: AU (occurrence: AU)
  Receive Date: 20200302
  Receipt Date: 20200302
  Transmission Date: 20200409
  Serious: Yes (Death)
  Sender: FDA-Public Use
  Company Number: AU-ROCHE-2558830

PATIENT
  Age: 87 Year
  Sex: Female
  Weight: 53 kg

DRUGS (8)
  1. ACTONELCOMBI [Concomitant]
     Indication: OSTEOPOROSIS
  2. ENTECAVIR. [Concomitant]
     Active Substance: ENTECAVIR
     Indication: HEPATITIS B REACTIVATION
     Route: 065
     Dates: start: 20151023
  3. RITUXIMAB. [Suspect]
     Active Substance: RITUXIMAB
     Indication: NON-HODGKIN^S LYMPHOMA
     Dosage: ON 19/AUG/2014, MOST RECENT DOSE (375 MG/ML) OF RITUXIMAB WAS GIVEN.?VOLUME (603.25 ML) OF LAST RITU
     Route: 042
     Dates: start: 20130618
  4. BENDAMUSTINE [Suspect]
     Active Substance: BENDAMUSTINE
     Indication: NON-HODGKIN^S LYMPHOMA
     Dosage: ON 14/NOV/2013, MOST RECENT DOSE (105 MG) OF BENDAMUSTINE WAS GIVEN.?DOSE: 90 MG/M2 INFUSION WILL BE
     Route: 042
     Dates: start: 20130618
  5. PARACETAMOL [Concomitant]
     Active Substance: ACETAMINOPHEN
     Indication: PAIN
  6. METFORMIN [Concomitant]
     Active Substance: METFORMIN HYDROCHLORIDE
     Indication: TYPE 2 DIABETES MELLITUS
     Route: 065
  7. ROSUVASTATIN. [Concomitant]
     Active Substance: ROSUVASTATIN
     Indication: BLOOD CHOLESTEROL INCREASED
  8. AMLODIPINE [Concomitant]
     Active Substance: AMLODIPINE BESYLATE
     Indication: HYPERTENSION

REACTIONS (1)
  - Acute myeloid leukaemia [Fatal]

NARRATIVE: CASE EVENT DATE: 20190508
